FAERS Safety Report 4675329-2 (Version None)
Quarter: 2005Q2

REPORT INFORMATION
  Report Type: 
  Country: None (occurrence: None)
  Receive Date: 20050527
  Receipt Date: 20050422
  Transmission Date: 20051028
  Serious: Yes (Disabling)
  Sender: FDA-Public Use
  Company Number: US-KINGPHARMUSA00001-K200500543

PATIENT
  Age: 63 Year
  Sex: Female
  Weight: 109 kg

DRUGS (1)
  1. ALTACE [Suspect]
     Indication: MITRAL VALVE DISEASE
     Dosage: 2.5 MG, QD
     Route: 048
     Dates: start: 20041102, end: 20050331

REACTIONS (5)
  - BLOOD PRESSURE INCREASED [None]
  - ECZEMA [None]
  - OEDEMA PERIPHERAL [None]
  - URINE OUTPUT DECREASED [None]
  - VEIN DISORDER [None]
